FAERS Safety Report 7785480-6 (Version None)
Quarter: 2011Q3

REPORT INFORMATION
  Report Type: 
  Country: None (occurrence: None)
  Receive Date: 20110929
  Receipt Date: 20110921
  Transmission Date: 20111222
  Serious: Yes (Other)
  Sender: FDA-Public Use
  Company Number: US-US-EMD SERONO, INC.-7058317

PATIENT
  Sex: Female
  Weight: 37 kg

DRUGS (2)
  1. CORTEF [Concomitant]
     Route: 048
     Dates: start: 20020910
  2. SAIZEN [Suspect]
     Indication: PRODUCT USED FOR UNKNOWN INDICATION
     Route: 058
     Dates: start: 20051210, end: 20060201

REACTIONS (1)
  - SCOLIOSIS [None]
